FAERS Safety Report 17102076 (Version 1)
Quarter: 2019Q4

REPORT INFORMATION
  Report Type: Report from Study
  Country: None (occurrence: US)
  Receive Date: 20191202
  Receipt Date: 20191202
  Transmission Date: 20200122
  Serious: Yes (Death, Hospitalization, Other)
  Sender: FDA-Public Use
  Company Number: US-ABBVIE-18P-163-2457320-00

PATIENT
  Age: 58 Year
  Sex: Female

DRUGS (14)
  1. IBRUTINIB [Suspect]
     Active Substance: IBRUTINIB
     Route: 048
     Dates: start: 20180810, end: 20180814
  2. LENALIDOMIDE [Concomitant]
     Active Substance: LENALIDOMIDE
     Route: 048
     Dates: start: 20180810, end: 20180810
  3. PREDNISONE. [Concomitant]
     Active Substance: PREDNISONE
     Dosage: DAY 1-12
     Route: 048
     Dates: start: 20180726, end: 20180731
  4. PREDNISONE. [Concomitant]
     Active Substance: PREDNISONE
     Indication: DIFFUSE LARGE B-CELL LYMPHOMA
     Dosage: DAY 1-7
     Route: 048
     Dates: start: 20180720, end: 20180726
  5. IBRUTINIB [Suspect]
     Active Substance: IBRUTINIB
     Indication: DIFFUSE LARGE B-CELL LYMPHOMA
     Dosage: DAYS 1-14,  UP TO 6 CYCLES,
     Route: 048
     Dates: start: 20180720, end: 20180731
  6. OBINUTUZUMAB. [Concomitant]
     Active Substance: OBINUTUZUMAB
     Dosage: DAY 1  AND DAY 2
     Route: 042
     Dates: start: 20180721
  7. LENALIDOMIDE [Concomitant]
     Active Substance: LENALIDOMIDE
     Indication: DIFFUSE LARGE B-CELL LYMPHOMA
     Dosage: DAYS 1-15; UP TO 6 CYCLES
     Route: 048
     Dates: start: 20180720, end: 20180731
  8. OBINUTUZUMAB. [Concomitant]
     Active Substance: OBINUTUZUMAB
     Dosage: INFUSION SOLUTION, CYCLE 2 DAYS 1-5 (1000 MG, CYCLE 2, DAY 1)
     Route: 042
     Dates: start: 20180810, end: 20180811
  9. OBINUTUZUMAB. [Concomitant]
     Active Substance: OBINUTUZUMAB
     Dosage: DAY 1  AND DAY 2
     Route: 042
     Dates: start: 20180731
  10. LENALIDOMIDE [Concomitant]
     Active Substance: LENALIDOMIDE
     Route: 048
     Dates: start: 20180814, end: 20180814
  11. LENALIDOMIDE [Concomitant]
     Active Substance: LENALIDOMIDE
     Route: 048
     Dates: start: 20180812, end: 20180812
  12. VENETOCLAX. [Suspect]
     Active Substance: VENETOCLAX
     Indication: DIFFUSE LARGE B-CELL LYMPHOMA
     Dosage: DAYS 2-14, AT VARYING DOSES OF 200-800MG (BASED UPON ASSIGNED DOSE LEVEL);
     Route: 048
     Dates: start: 20180804, end: 20180814
  13. PREDNISONE. [Concomitant]
     Active Substance: PREDNISONE
     Dosage: CYCLE 2, DAY 1
     Route: 048
     Dates: start: 20180810, end: 20180814
  14. OBINUTUZUMAB. [Concomitant]
     Active Substance: OBINUTUZUMAB
     Indication: DIFFUSE LARGE B-CELL LYMPHOMA
     Dosage: CYCLE 1 DAY 1
     Route: 042
     Dates: start: 20180720

REACTIONS (6)
  - Sinus tachycardia [Recovered/Resolved]
  - Hypotension [Recovered/Resolved]
  - Rash maculo-papular [Recovered/Resolved]
  - Disease progression [Fatal]
  - Pyrexia [Recovered/Resolved]
  - Rash [Unknown]

NARRATIVE: CASE EVENT DATE: 20180730
